FAERS Safety Report 6143026-2 (Version None)
Quarter: 2009Q2

REPORT INFORMATION
  Report Type: 
  Country: None (occurrence: None)
  Receive Date: 20090403
  Receipt Date: 20090403
  Transmission Date: 20091009
  Serious: Yes (Hospitalization)
  Sender: FDA-Public Use
  Company Number: US-PFIZER INC-2009150266

PATIENT
  Age: 3 Year
  Sex: Male
  Weight: 7.983 kg

DRUGS (1)
  1. DEPO-MEDROL [Suspect]
     Dates: start: 20090102

REACTIONS (1)
  - INCORRECT ROUTE OF DRUG ADMINISTRATION [None]
